FAERS Safety Report 9648622 (Version 1)
Quarter: 2013Q4

REPORT INFORMATION
  Report Type: Spontaneous
  Country: US (occurrence: US)
  Receive Date: 20131028
  Receipt Date: 20131028
  Transmission Date: 20140711
  Serious: No
  Sender: FDA-Public Use
  Company Number: US-PFIZER INC-2013304023

PATIENT
  Age: 70 Year
  Sex: Male
  Weight: 79.4 kg

DRUGS (3)
  1. GLUCOTROL [Suspect]
     Indication: ASTHENIA
     Dosage: 5 MG, 1X/DAY
     Dates: start: 201310
  2. JANUMET [Interacting]
     Dosage: UNK
  3. FENOFIBRATE [Interacting]
     Dosage: UNK

REACTIONS (2)
  - Drug interaction [Unknown]
  - Drug ineffective for unapproved indication [Unknown]
